FAERS Safety Report 9711567 (Version 1)
Quarter: 2013Q4

REPORT INFORMATION
  Report Type: Spontaneous
  Country: US (occurrence: US)
  Receive Date: 20131126
  Receipt Date: 20131126
  Transmission Date: 20140711
  Serious: No
  Sender: FDA-Public Use
  Company Number: US-B.I. PHARMACEUTICALS,INC./RIDGEFIELD-2013-BI-37401BP

PATIENT
  Age: 75 Year
  Sex: Male
  Weight: 107 kg

DRUGS (1)
  1. COMBIVENT [Suspect]
     Indication: ASBESTOSIS
     Dosage: STRENGTH: 20 MCG / 100 MCG; DAILY DOSE: 40MCG/200MCG
     Route: 055
     Dates: start: 201311

REACTIONS (1)
  - Off label use [Not Recovered/Not Resolved]
